FAERS Safety Report 14609558 (Version 1)
Quarter: 2018Q1

REPORT INFORMATION
  Report Type: Spontaneous
  Country: US (occurrence: US)
  Receive Date: 20180307
  Receipt Date: 20180307
  Transmission Date: 20180509
  Serious: Yes (Disabling, Other)
  Sender: FDA-Public Use
  Company Number: None

PATIENT
  Age: 78 Year
  Sex: Female
  Weight: 72.12 kg

DRUGS (5)
  1. ACETAMINOPHEN. [Concomitant]
     Active Substance: ACETAMINOPHEN
  2. ALLEGRA [Concomitant]
     Active Substance: FEXOFENADINE HYDROCHLORIDE
  3. LISINOPRIL. [Suspect]
     Active Substance: LISINOPRIL
     Route: 048
     Dates: start: 20180212, end: 20180217
  4. CARTIA XT [Suspect]
     Active Substance: DILTIAZEM HYDROCHLORIDE
     Indication: HYPERTENSION
     Dosage: 120MG CHG TO 240MG 1 CAPS 1 DAILY MOUTH
     Route: 048
     Dates: start: 20180207, end: 20180217
  5. PHILLIPS COLON HEALTH [Concomitant]

REACTIONS (4)
  - Blood pressure increased [None]
  - Dyspnoea [None]
  - Heart rate increased [None]
  - Panic attack [None]

NARRATIVE: CASE EVENT DATE: 20180209
